FAERS Safety Report 9941789 (Version 1)
Quarter: 2014Q1

REPORT INFORMATION
  Report Type: Report from Study
  Country: US (occurrence: US)
  Receive Date: 20140303
  Receipt Date: 20140303
  Transmission Date: 20141002
  Serious: No
  Sender: FDA-Public Use
  Company Number: US-ABBVIE-13P-163-1042993-00

PATIENT
  Age: 49 Year
  Sex: Female

DRUGS (6)
  1. HUMIRA [Suspect]
     Indication: CROHN^S DISEASE
     Dosage: LOADING DOSE
     Dates: start: 20130110, end: 20130110
  2. HUMIRA [Suspect]
     Dates: start: 20130124
  3. LIALDA [Concomitant]
     Indication: CROHN^S DISEASE
  4. OMEPRAZOLE [Concomitant]
     Indication: GASTROOESOPHAGEAL REFLUX DISEASE
  5. BUDESONIDE [Concomitant]
     Indication: CROHN^S DISEASE
  6. HYDROCODONE [Concomitant]
     Indication: PAIN
     Dosage: 5/325MG EVERY 6 HOURS

REACTIONS (1)
  - Injection site rash [Not Recovered/Not Resolved]
